FAERS Safety Report 6239502-4 (Version None)
Quarter: 2009Q2

REPORT INFORMATION
  Report Type: 
  Country: None (occurrence: None)
  Receive Date: 20090618
  Receipt Date: 20090618
  Transmission Date: 20091009
  Serious: No
  Sender: FDA-Public Use
  Company Number: None

PATIENT
  Sex: Female
  Weight: 88.4514 kg

DRUGS (2)
  1. ZICAM COLD REMEDY GEL + REGULAR GEL TECH + GUM TECH [Suspect]
     Indication: NASOPHARYNGITIS
     Dosage: PER BOTTLE INSTRUCTIONS 4-5 TIMES DAY OTHER (DURATION: 3-4 YR PERIOD WHEN SICK)
     Route: 050
  2. ZICAM ALLERGY RELEIF GEL TECH + GUM TECH, ZICAM + MATRIXX [Suspect]
     Indication: HYPERSENSITIVITY
     Dosage: PER BOTTLE INSTRUCTIONS NASAL
     Route: 045

REACTIONS (1)
  - ANOSMIA [None]
